FAERS Safety Report 20410292 (Version 1)
Quarter: 2022Q1

REPORT INFORMATION
  Report Type: Spontaneous
  Country: GB (occurrence: GB)
  Receive Date: 20220201
  Receipt Date: 20220201
  Transmission Date: 20220423
  Serious: Yes (Other)
  Sender: FDA-Public Use
  Company Number: None

PATIENT
  Age: 63 Year
  Sex: Female
  Weight: 80 kg

DRUGS (19)
  1. RAMIPRIL [Suspect]
     Active Substance: RAMIPRIL
     Indication: Product used for unknown indication
     Dosage: 1.25 MILLIGRAM, QD
     Dates: start: 20210812
  2. ALFACALCIDOL [Concomitant]
     Active Substance: ALFACALCIDOL
     Dosage: 1 DOSAGE FORM, QD
     Dates: start: 20210705
  3. ATORVASTATIN [Concomitant]
     Active Substance: ATORVASTATIN
     Dosage: 1 DOSAGE FORM, QD
     Dates: start: 20210809
  4. BISOPROLOL [Concomitant]
     Active Substance: BISOPROLOL
     Dosage: 1 DOSAGE FORM, QD (START DATE: 12-OCT-202)
  5. CHLORPHENIRAMINE MALEATE [Concomitant]
     Active Substance: CHLORPHENIRAMINE MALEATE
     Dosage: 1 DOSAGE FORM, PRN
     Dates: start: 20201016
  6. CINACALCET [Concomitant]
     Active Substance: CINACALCET
     Dosage: 1 DOSAGE FORM, QD
     Dates: start: 20191231
  7. CLOPIDOGREL [Concomitant]
     Active Substance: CLOPIDOGREL BISULFATE
     Dosage: 1 DOSAGE FORM, QD
     Dates: start: 20180430
  8. CHOLECALCIFEROL [Concomitant]
     Active Substance: CHOLECALCIFEROL
     Dosage: 1 DOSAGE FORM, QD
     Dates: start: 20210215
  9. FUROSEMIDE [Concomitant]
     Active Substance: FUROSEMIDE
     Dosage: 2 DOSAGE FORM, BID
     Dates: start: 20170202
  10. HUMALOG [Concomitant]
     Active Substance: INSULIN LISPRO
     Dosage: INJECT 1 TO 14 UNITS AT BREAKFAST, LUNCH AND TE...
     Dates: start: 20160617
  11. HYDROXOCOBALAMIN [Concomitant]
     Active Substance: HYDROXOCOBALAMIN
     Dosage: 1 DOSAGE FORM, EVERY 90 DAYS (EVERY 90 DAY)
     Dates: start: 20210524
  12. ISOSORBIDE MONONITRATE [Concomitant]
     Active Substance: ISOSORBIDE MONONITRATE
     Dosage: STOPPED BY CARDIOLOGY AS NO CHEST PAIN. REMOVE ...
     Dates: start: 20210607, end: 20211118
  13. LANSOPRAZOLE [Concomitant]
     Active Substance: LANSOPRAZOLE
     Dosage: 1 DOSAGE FORM, QD (DAILY BEFORE FOOD)
     Dates: start: 20200220
  14. LANTUS [Concomitant]
     Active Substance: INSULIN GLARGINE
     Dosage: 14 UNITS ONCE DAILY
     Dates: start: 20150414
  15. LEVOTHYROXINE [Concomitant]
     Active Substance: LEVOTHYROXINE
     Dosage: 2 DOSAGE FORM, QD (AT MORNING BEFORE FOOD)
     Dates: start: 20080902
  16. PREGABALIN [Concomitant]
     Active Substance: PREGABALIN
     Dosage: 1 DOSAGE FORM, QD (AT NIGHT)
     Dates: start: 20191231
  17. QUININE [Concomitant]
     Active Substance: QUININE
     Dosage: 1 DOSAGE FORM, QD (AT NIGHT)
     Dates: start: 20210524
  18. RENAVIT [Concomitant]
     Dosage: 1 DOSAGE FORM, QD (IN THE MORNING)
     Dates: start: 20210524
  19. SEVELAMER [Concomitant]
     Active Substance: SEVELAMER
     Dosage: 1 DOSAGE FORM, TID (WITH MEALS START: 08-NOV-2021)

REACTIONS (2)
  - Neck pain [Recovered/Resolved]
  - Dizziness [Recovered/Resolved]

NARRATIVE: CASE EVENT DATE: 20210812
